FAERS Safety Report 9978311 (Version 1)
Quarter: 2014Q1

REPORT INFORMATION
  Report Type: Report from Study
  Country: US (occurrence: US)
  Receive Date: 20140306
  Receipt Date: 20140306
  Transmission Date: 20141002
  Serious: No
  Sender: FDA-Public Use
  Company Number: US-ABBVIE-13P-163-1172797-00

PATIENT
  Sex: Female

DRUGS (13)
  1. HUMIRA [Suspect]
     Indication: RHEUMATOID ARTHRITIS
  2. FOLIC ACID [Concomitant]
     Indication: PRODUCT USED FOR UNKNOWN INDICATION
  3. HCTZ [Concomitant]
     Indication: HYPERTENSION
  4. IRON [Concomitant]
     Indication: BLOOD IRON DECREASED
  5. LEVOTHYROXINE [Concomitant]
     Indication: HYPOTHYROIDISM
  6. METHOTREXATE [Concomitant]
     Indication: RHEUMATOID ARTHRITIS
     Dosage: ONE INJECTION
  7. MULTIVITAMIN [Concomitant]
     Indication: PRODUCT USED FOR UNKNOWN INDICATION
     Dosage: DAILY
  8. PIROXICAM [Concomitant]
     Indication: RHEUMATOID ARTHRITIS
  9. POTASSIUM [Concomitant]
     Indication: BLOOD POTASSIUM DECREASED
  10. PRAVASTATIN SODIUM [Concomitant]
     Indication: BLOOD CHOLESTEROL INCREASED
  11. SINGULAIR [Concomitant]
     Indication: HYPERSENSITIVITY
  12. CALCIUM [Concomitant]
     Indication: PRODUCT USED FOR UNKNOWN INDICATION
     Dosage: TWO PILLS
  13. VENTOLINE [Concomitant]
     Indication: ASTHMA
     Route: 055

REACTIONS (3)
  - Injection site urticaria [Not Recovered/Not Resolved]
  - Injection site warmth [Not Recovered/Not Resolved]
  - Injection site pruritus [Not Recovered/Not Resolved]
